FAERS Safety Report 16154094 (Version 1)
Quarter: 2019Q2

REPORT INFORMATION
  Report Type: Spontaneous
  Country: US (occurrence: US)
  Receive Date: 20190403
  Receipt Date: 20190403
  Transmission Date: 20190711
  Serious: No
  Sender: FDA-Public Use
  Company Number: US-CIPLA LTD.-2019US01198

PATIENT

DRUGS (4)
  1. TESTOSTERONE. [Suspect]
     Active Substance: TESTOSTERONE
     Indication: PRODUCT USED FOR UNKNOWN INDICATION
     Dosage: UNK, SINCE 1 AND HALF YEAR
     Route: 030
  2. TESTOSTERONE. [Suspect]
     Active Substance: TESTOSTERONE
     Dosage: UNK, ONE VIAL WAS HALF CRYSTALLIZED, AND ONE WAS A LITTLE CRYSTALLIZED
     Route: 030
  3. TESTOSTERONE. [Suspect]
     Active Substance: TESTOSTERONE
     Dosage: 0.5 MILLILITER, (1 ML SINGLE DOSE VIAL) ONCE A WEEK
     Route: 030
  4. TESTOSTERONE. [Suspect]
     Active Substance: TESTOSTERONE
     Dosage: 0.5 MILLILITER, (1 ML SINGLE DOSE VIAL) ONCE A WEEK
     Route: 030

REACTIONS (3)
  - Incorrect dose administered [Unknown]
  - Product administration error [Unknown]
  - Product deposit [Unknown]
